FAERS Safety Report 5495199-2 (Version None)
Quarter: 2007Q4

REPORT INFORMATION
  Report Type: 
  Country: None (occurrence: None)
  Receive Date: 20071024
  Receipt Date: 20070719
  Transmission Date: 20080405
  Serious: No
  Sender: FDA-Public Use
  Company Number: US-AMGEN-US226194

PATIENT
  Sex: Female
  Weight: 110.8 kg

DRUGS (2)
  1. VECTIBIX [Suspect]
     Indication: COLORECTAL CANCER
     Route: 042
     Dates: start: 20070201, end: 20070705
  2. MAGNESIUM SULFATE [Concomitant]
     Route: 065

REACTIONS (2)
  - BLOOD MAGNESIUM DECREASED [None]
  - PARONYCHIA [None]
